FAERS Safety Report 6703020-7 (Version None)
Quarter: 2010Q2

REPORT INFORMATION
  Report Type: 
  Country: None (occurrence: None)
  Receive Date: 20100429
  Receipt Date: 20100429
  Transmission Date: 20101027
  Serious: Yes (Other)
  Sender: FDA-Public Use
  Company Number: None

PATIENT
  Sex: Female
  Weight: 68.0396 kg

DRUGS (1)
  1. TRAZODONE HCL [Suspect]
     Dosage: 1 AT BEDTIME PO
     Route: 048
     Dates: start: 20090401, end: 20100428

REACTIONS (3)
  - APPARENT DEATH [None]
  - DIZZINESS [None]
  - VISION BLURRED [None]
